FAERS Safety Report 22886973 (Version 22)
Quarter: 2025Q4

REPORT INFORMATION
  Report Type: Report from Study
  Country: US (occurrence: None)
  Receive Date: 20230831
  Receipt Date: 20251106
  Transmission Date: 20260117
  Serious: Yes (Hospitalization, Other)
  Sender: UCB
  Company Number: US-UCBSA-2023025189

PATIENT
  Age: 10 Year
  Weight: 35.4 kg

DRUGS (34)
  1. FENFLURAMINE [Interacting]
     Active Substance: FENFLURAMINE
     Indication: Lennox-Gastaut syndrome
     Dosage: 5.6 MILLILITER, 2X/DAY (BID)
  2. FENFLURAMINE [Interacting]
     Active Substance: FENFLURAMINE
     Dosage: 5.6 MILLILITER, 2X/DAY (BID)
  3. FENFLURAMINE [Interacting]
     Active Substance: FENFLURAMINE
     Dosage: 5.6 MILLILITER, 2X/DAY (BID)
  4. FENFLURAMINE [Interacting]
     Active Substance: FENFLURAMINE
     Dosage: 5.6 MILLILITER, 2X/DAY (BID)
  5. FENFLURAMINE [Interacting]
     Active Substance: FENFLURAMINE
     Dosage: 5.6 MILLILITER, 2X/DAY (BID)
  6. FENFLURAMINE [Interacting]
     Active Substance: FENFLURAMINE
     Dosage: 12.25 MG (5.6 ML) BY MOUTH TWICE A DAY
  7. FENFLURAMINE [Interacting]
     Active Substance: FENFLURAMINE
     Dosage: 5.6 MILLILITER, 2X/DAY (BID)
  8. FENFLURAMINE [Interacting]
     Active Substance: FENFLURAMINE
     Dosage: 5.6 MILLILITER, 2X/DAY (BID)
  9. FENFLURAMINE [Interacting]
     Active Substance: FENFLURAMINE
     Dosage: 5.6 MILLILITER, 2X/DAY (BID)
  10. FENFLURAMINE [Interacting]
     Active Substance: FENFLURAMINE
     Dosage: 5.6 MILLILITER, 2X/DAY (BID)
  11. FENFLURAMINE [Interacting]
     Active Substance: FENFLURAMINE
     Dosage: 5.6 MILLILITER, 2X/DAY (BID)
  12. FENFLURAMINE [Interacting]
     Active Substance: FENFLURAMINE
     Dosage: 5.6 MILLILITER, 2X/DAY (BID)
  13. FENFLURAMINE [Interacting]
     Active Substance: FENFLURAMINE
     Dosage: 5.6 MILLILITER, 2X/DAY (BID)
  14. FENFLURAMINE [Interacting]
     Active Substance: FENFLURAMINE
     Dosage: 5.6 MILLILITER, 2X/DAY (BID)
  15. FENFLURAMINE [Interacting]
     Active Substance: FENFLURAMINE
     Dosage: 5.9 MILLILITER, 2X/DAY (BID)
  16. BANZEL [Suspect]
     Active Substance: RUFINAMIDE
     Indication: Seizure
     Dosage: 1,000 MG (2.5 TABS) BY MOUTH TWICE A DAY
  17. BANZEL [Suspect]
     Active Substance: RUFINAMIDE
     Dosage: 1200 MILLIGRAM, 2X/DAY (BID)
  18. BANZEL [Suspect]
     Active Substance: RUFINAMIDE
     Dosage: 1400 MILLIGRAM, 2X/DAY (BID)
  19. BRIVARACETAM [Concomitant]
     Active Substance: BRIVARACETAM
     Indication: Seizure
     Dosage: 100 MILLIGRAM, 2X/DAY (BID)
  20. BRIVARACETAM [Concomitant]
     Active Substance: BRIVARACETAM
     Dosage: 100 MILLIGRAM, 2X/DAY (BID)
  21. doBAZam [Concomitant]
     Indication: Seizure
     Dosage: 30 MILLIGRAM, 2X/DAY (BID) 2.5 TABLETS TWICE A DAY
  22. doBAZam [Concomitant]
     Dosage: 30 MILLIGRAM, 2X/DAY (BID) 2.5 TABLETS TWICE A DAY
  23. doBAZam [Concomitant]
     Dosage: 2.5 TABLETS IN THE AM AND 3 TABLETS IN THE EVENING
  24. doBAZam [Concomitant]
     Dosage: 30 MILLIGRAM EVERY MORNING
  25. doBAZam [Concomitant]
     Dosage: 350 MILLIGRAM AT BEDTIME
  26. VALTOCO [Concomitant]
     Active Substance: DIAZEPAM
     Indication: Seizure cluster
     Dosage: ADMINISTER 10MG (1 SPRAY) INTO THE NOSE AS NEEDED
  27. VALTOCO [Concomitant]
     Active Substance: DIAZEPAM
     Dosage: ADMINISTER 10MG (1 SPRAY) INTO THE NOSE AS NEEDED
  28. VALTOCO [Concomitant]
     Active Substance: DIAZEPAM
     Dosage: 1 DEVICE PER NOSTRIL AS NEEDED
  29. dph-lido-aihydr-mghydr-simeth [Concomitant]
     Indication: Dysphagia
     Dosage: SWISH IN MOUTH AND SPIT 1 O ML EVERY 4 HOURS AS NEEDED
  30. ROXICODONE [Concomitant]
     Active Substance: OXYCODONE HYDROCHLORIDE
     Indication: Breakthrough pain
     Dosage: ADMINISTER 2 ML (2 MG) THROUGH NG-TUBE EVERY 4 HOURS AS NEEDED
  31. ROXICODONE [Concomitant]
     Active Substance: OXYCODONE HYDROCHLORIDE
     Indication: Malaise
  32. ROXICODONE [Concomitant]
     Active Substance: OXYCODONE HYDROCHLORIDE
     Indication: Oral pain
  33. MOTRIN [Concomitant]
     Active Substance: IBUPROFEN
     Indication: Pain
     Dosage: 400 MILLIGRAM AS NEEDED
  34. MELATONIN [Concomitant]
     Active Substance: MELATONIN
     Indication: Product used for unknown indication
     Dosage: 5 MILLIGRAM AT BEDTIME

REACTIONS (39)
  - Seizure [Recovered/Resolved]
  - Fall [Not Recovered/Not Resolved]
  - Lip injury [Not Recovered/Not Resolved]
  - Suture insertion [Not Recovered/Not Resolved]
  - Herpes simplex [Recovered/Resolved]
  - Vulvovaginal injury [Not Recovered/Not Resolved]
  - Gait disturbance [Not Recovered/Not Resolved]
  - Fatigue [Recovered/Resolved]
  - Eating disorder [Not Recovered/Not Resolved]
  - Lethargy [Not Recovered/Not Resolved]
  - Behaviour disorder [Not Recovered/Not Resolved]
  - Hypotonia [Not Recovered/Not Resolved]
  - Decreased appetite [Recovered/Resolved]
  - Weight decreased [Not Recovered/Not Resolved]
  - Noninfective gingivitis [Recovered/Resolved]
  - Urine output decreased [Recovered/Resolved]
  - Constipation [Recovered/Resolved]
  - Dyspepsia [Not Recovered/Not Resolved]
  - Swelling [Not Recovered/Not Resolved]
  - Contusion [Not Recovered/Not Resolved]
  - Abnormal behaviour [Not Recovered/Not Resolved]
  - Drug interaction [Unknown]
  - Psychomotor hyperactivity [Recovered/Resolved]
  - Crying [Not Recovered/Not Resolved]
  - Gingival bleeding [Recovered/Resolved]
  - Gingival swelling [Recovered/Resolved]
  - Tooth fracture [Recovered/Resolved]
  - Oropharyngeal plaque [Recovered/Resolved]
  - Gingivitis [Recovered/Resolved]
  - Skin striae [Not Recovered/Not Resolved]
  - Taste disorder [Not Recovered/Not Resolved]
  - Mood swings [Not Recovered/Not Resolved]
  - Coordination abnormal [Not Recovered/Not Resolved]
  - Snoring [Not Recovered/Not Resolved]
  - Precocious puberty [Not Recovered/Not Resolved]
  - Sleep talking [Not Recovered/Not Resolved]
  - Urinary incontinence [Not Recovered/Not Resolved]
  - Intra-uterine contraceptive device insertion [Recovered/Resolved]
  - Drug ineffective [Unknown]
